FAERS Safety Report 20072270 (Version 3)
Quarter: 2022Q2

REPORT INFORMATION
  Report Type: Report from Study
  Country: CA (occurrence: CA)
  Receive Date: 20211116
  Receipt Date: 20220417
  Transmission Date: 20220720
  Serious: No
  Sender: FDA-Public Use
  Company Number: CA-JNJFOC-20211107995

PATIENT
  Sex: Female

DRUGS (1)
  1. TREMFYA [Suspect]
     Active Substance: GUSELKUMAB
     Indication: Psoriasis
     Route: 058
     Dates: start: 20201218

REACTIONS (4)
  - Product leakage [Unknown]
  - Accidental exposure to product [Unknown]
  - Underdose [Unknown]
  - Exposure during pregnancy [Unknown]

NARRATIVE: CASE EVENT DATE: 20211029
